FAERS Safety Report 18006803 (Version 1)
Quarter: 2020Q3

REPORT INFORMATION
  Report Type: Spontaneous
  Country: US (occurrence: US)
  Receive Date: 20200710
  Receipt Date: 20200710
  Transmission Date: 20201103
  Serious: No
  Sender: FDA-Public Use
  Company Number: US-SA-2020SA177948

PATIENT

DRUGS (16)
  1. BOTOX [Concomitant]
     Active Substance: ONABOTULINUMTOXINA
  2. CLINDAMYCIN. [Concomitant]
     Active Substance: CLINDAMYCIN
  3. PROGESTERONE. [Concomitant]
     Active Substance: PROGESTERONE
  4. TRIMO SAN [Concomitant]
     Active Substance: OXYQUINOLINE SULFATE\SODIUM LAURYL SULFATE
  5. SUMATRIPTAN. [Concomitant]
     Active Substance: SUMATRIPTAN
  6. LINZESS [Concomitant]
     Active Substance: LINACLOTIDE
  7. PENCILLIN [Concomitant]
     Active Substance: PENICILLIN
  8. CLIMARA [ESTRADIOL] [Concomitant]
  9. METFORMIN [Concomitant]
     Active Substance: METFORMIN HYDROCHLORIDE
  10. ATORVASTATIN [Concomitant]
     Active Substance: ATORVASTATIN
  11. SUPARTZ [Concomitant]
     Active Substance: HYALURONATE SODIUM
  12. ESTRADIOL. [Concomitant]
     Active Substance: ESTRADIOL
  13. URIBEL [Concomitant]
     Active Substance: HYOSCYAMINE SULFATE\METHENAMINE\METHYLENE BLUE\PHENYL SALICYLATE\SODIUM PHOSPHATE, MONOBASIC, MONOHYDRATE
  14. DUPIXENT [Suspect]
     Active Substance: DUPILUMAB
     Indication: MIGRAINE
     Dosage: 300 MG, QOW
     Route: 058
     Dates: start: 202004
  15. FEM [Concomitant]
  16. TOBRAMYCIN AND DEXAMETHASONE [Concomitant]
     Active Substance: DEXAMETHASONE\TOBRAMYCIN

REACTIONS (3)
  - Conjunctivitis [Not Recovered/Not Resolved]
  - Product use in unapproved indication [Unknown]
  - Product dose omission issue [Unknown]
